FAERS Safety Report 9304466 (Version 1)
Quarter: 2013Q2

REPORT INFORMATION
  Report Type: Spontaneous
  Country: US (occurrence: US)
  Receive Date: 20130523
  Receipt Date: 20130523
  Transmission Date: 20140414
  Serious: No
  Sender: FDA-Public Use
  Company Number: US-009507513-1305USA011746

PATIENT
  Sex: Female

DRUGS (1)
  1. JANUVIA [Suspect]
     Indication: DIABETES MELLITUS
     Dosage: 50 MG, ONE JANUVIA 50 MG TABLET ONCE DAILY
     Route: 048
     Dates: start: 20121206

REACTIONS (2)
  - Drug ineffective [Unknown]
  - No adverse event [Unknown]
